FAERS Safety Report 8270467 (Version 4)
Quarter: 2014Q2

REPORT INFORMATION
  Report Type: Report from Study
  Country: GB (occurrence: GB)
  Receive Date: 20111201
  Receipt Date: 20140512
  Transmission Date: 20141212
  Serious: Yes (Hospitalization)
  Sender: FDA-Public Use
  Company Number: GB-ROCHE-1015724

PATIENT
  Age: 55 Year
  Sex: Female
  Weight: 125.3 kg

DRUGS (5)
  1. VEMURAFENIB [Suspect]
     Indication: METASTATIC MALIGNANT MELANOMA
     Dosage: LAST DOSE PRIOR TO SAE 05 NOV 2011
     Route: 048
     Dates: start: 20110830
  2. CO-CODAMOL [Concomitant]
     Dosage: 8 PER TABLET, STRENGTH 8/500
     Route: 065
     Dates: start: 20111101, end: 20111108
  3. CO-CODAMOL [Concomitant]
     Dosage: 8/TAB
     Route: 065
     Dates: start: 20111108
  4. PREDNISOLONE [Concomitant]
     Route: 065
     Dates: start: 20111103, end: 20111118
  5. WARFARIN [Concomitant]
     Dosage: VARIABLE
     Route: 065
     Dates: start: 20110915

REACTIONS (1)
  - Sciatica [Recovered/Resolved]
